FAERS Safety Report 8177401-1 (Version None)
Quarter: 2012Q1

REPORT INFORMATION
  Report Type: 
  Country: None (occurrence: None)
  Receive Date: 20120301
  Receipt Date: 20120224
  Transmission Date: 20120608
  Serious: Yes (Hospitalization, Other)
  Sender: FDA-Public Use
  Company Number: CA-ROCHE-GNE309841

PATIENT
  Sex: Male

DRUGS (1)
  1. XOLAIR [Suspect]
     Indication: ASTHMA
     Dosage: 375 MG, Q2W
     Route: 058
     Dates: start: 20100722

REACTIONS (8)
  - NECK PAIN [None]
  - ARRHYTHMIA [None]
  - FATIGUE [None]
  - RESPIRATORY TRACT INFECTION [None]
  - SLEEP DISORDER [None]
  - MUSCLE DISORDER [None]
  - HAEMOPTYSIS [None]
  - CHEST PAIN [None]
